FAERS Safety Report 9255775 (Version 4)
Quarter: 2013Q2

REPORT INFORMATION
  Report Type: Spontaneous
  Country: JP (occurrence: JP)
  Receive Date: 20130425
  Receipt Date: 20130617
  Transmission Date: 20140414
  Serious: Yes (Other)
  Sender: FDA-Public Use
  Company Number: JP-VERTEX PHARMACEUTICALS INC.-2013-002376

PATIENT
  Age: 53 Year
  Sex: Male

DRUGS (10)
  1. TELAVIC [Suspect]
     Indication: CHRONIC HEPATITIS C
     Dosage: 1500 MG, QD
     Route: 048
     Dates: start: 20130116, end: 20130325
  2. PEGINTRON [Suspect]
     Indication: CHRONIC HEPATITIS C
     Dosage: 1.5 ?G, QW
     Route: 058
     Dates: start: 20130116, end: 20130314
  3. PEGINTRON [Suspect]
     Dosage: 0.95 ?G, QW
     Route: 058
     Dates: start: 20130315
  4. REBETOL [Suspect]
     Indication: CHRONIC HEPATITIS C
     Dosage: 1000 MG, QD
     Route: 048
     Dates: start: 20130116, end: 20130214
  5. REBETOL [Suspect]
     Dosage: 400 MG, QD
     Route: 048
     Dates: start: 20130215, end: 20130301
  6. REBETOL [Suspect]
     Dosage: 200 MG, QD
     Route: 048
     Dates: start: 20130415, end: 20130429
  7. REBETOL [Suspect]
     Dosage: 300 MG, QD
     Route: 048
     Dates: start: 20130430, end: 20130506
  8. REBETOL [Suspect]
     Dosage: 400 MG, QD
     Route: 048
     Dates: start: 20130507
  9. TAKEPRON [Concomitant]
     Dosage: 15 MG, QD
     Route: 048
     Dates: start: 20130329, end: 20130405
  10. CEFZON [Concomitant]
     Dosage: 300 MG, QD
     Route: 048
     Dates: start: 20130329, end: 20130401

REACTIONS (5)
  - Drug eruption [Recovered/Resolved]
  - Drug eruption [Recovered/Resolved]
  - Drug eruption [Unknown]
  - Anaemia [Recovered/Resolved]
  - Hyperuricaemia [Recovered/Resolved]
